FAERS Safety Report 12918830 (Version 3)
Quarter: 2016Q4

REPORT INFORMATION
  Report Type: Spontaneous
  Country: IT (occurrence: IT)
  Receive Date: 20161108
  Receipt Date: 20161122
  Transmission Date: 20170207
  Serious: Yes (Hospitalization)
  Sender: FDA-Public Use
  Company Number: IT-ROCHE-1850295

PATIENT
  Age: 64 Year
  Sex: Male
  Weight: 94 kg

DRUGS (10)
  1. DEURSIL [Suspect]
     Active Substance: URSODIOL
     Indication: LIVER TRANSPLANT
     Dosage: ^300 MG HARD CAPSULE, 20 CAPSULES
     Route: 048
     Dates: start: 20160821, end: 20161018
  2. AMIODARONE [Suspect]
     Active Substance: AMIODARONE
     Indication: ATRIAL FIBRILLATION
     Dosage: DAILY, 200 MG TABLETS, 20 TABLETS
     Route: 048
     Dates: start: 20160821, end: 20161027
  3. PANTOPRAZOLE [Suspect]
     Active Substance: PANTOPRAZOLE SODIUM
     Indication: PROPHYLAXIS AGAINST GASTROINTESTINAL ULCER
     Dosage: DAILY, 40 MG GASTRORESISTANT TABLETS^ 14 TABLETS IN AL/OPA/AL/VC BLISTER PACK
     Route: 048
     Dates: start: 20160821, end: 20161018
  4. CARDIOASPIRIN [Suspect]
     Active Substance: ASPIRIN
     Indication: MYOCARDIAL ISCHAEMIA
     Dosage: ^100 MG GASTRO-RESISTANT TABLETS^, DAILY
     Route: 048
     Dates: start: 20161001, end: 20161018
  5. BASSADO [Suspect]
     Active Substance: DOXYCYCLINE HYCLATE
     Indication: STAPHYLOCOCCAL INFECTION
     Dosage: ^100 MG TABLETS^ 10 TABLETS, DAILY
     Route: 048
     Dates: start: 20161007, end: 20161010
  6. ACYCLOVIR. [Suspect]
     Active Substance: ACYCLOVIR
     Indication: PRODUCT USED FOR UNKNOWN INDICATION
     Dosage: DAILY, 25 X 400 MG TABLETS.
     Route: 048
     Dates: start: 20161001, end: 20161016
  7. TACNI [Suspect]
     Active Substance: TACROLIMUS
     Indication: LIVER TRANSPLANT
     Dosage: ^1 MG HARD CAPSULES^ 60 CAPSULES,
     Route: 048
     Dates: start: 20160821, end: 20161027
  8. DALACIN C [Suspect]
     Active Substance: CLINDAMYCIN PHOSPHATE
     Indication: STAPHYLOCOCCAL INFECTION
     Route: 065
     Dates: start: 20160821, end: 20161007
  9. VALCYTE [Suspect]
     Active Substance: VALGANCICLOVIR HYDROCHLORIDE
     Indication: CYTOMEGALOVIRUS INFECTION
     Dosage: ^450 MG FILM-COATED TABLETS^ 60 TABLETS, DAILY
     Route: 048
     Dates: start: 20161007, end: 20161018
  10. CUBICIN [Suspect]
     Active Substance: DAPTOMYCIN
     Indication: STAPHYLOCOCCAL INFECTION
     Route: 042
     Dates: start: 20160821, end: 20161010

REACTIONS (1)
  - Stevens-Johnson syndrome [Recovering/Resolving]

NARRATIVE: CASE EVENT DATE: 20161016
